FAERS Safety Report 9387020 (Version 1)
Quarter: 2013Q3

REPORT INFORMATION
  Report Type: Spontaneous
  Country: US (occurrence: None)
  Receive Date: 20130703
  Receipt Date: 20130703
  Transmission Date: 20140515
  Serious: Yes (Other)
  Sender: FDA-Public Use
  Company Number: None

PATIENT
  Age: 67 Year
  Sex: Female
  Weight: 65 kg

DRUGS (7)
  1. LOVENOX [Suspect]
     Indication: PORTAL VEIN THROMBOSIS
     Dosage: 60MG BID SC
     Route: 058
     Dates: start: 20130221, end: 20130228
  2. ALENDRONATE [Concomitant]
  3. SPIRONOLACTONE [Concomitant]
  4. URSODIOL [Concomitant]
  5. WARFARIN [Concomitant]
  6. ZOLPLDEM CR [Concomitant]
  7. IMODIUM [Concomitant]

REACTIONS (1)
  - Diarrhoea [None]
